FAERS Safety Report 9172105 (Version 1)
Quarter: 2013Q1

REPORT INFORMATION
  Report Type: Spontaneous
  Country: US (occurrence: US)
  Receive Date: 20130319
  Receipt Date: 20130319
  Transmission Date: 20140127
  Serious: No
  Sender: FDA-Public Use
  Company Number: US-009507513-1303USA005319

PATIENT
  Sex: Male

DRUGS (1)
  1. PROVENTIL [Suspect]
     Dosage: 2 PUFFS UP TO 4 TIMES A DAY
     Route: 055
     Dates: start: 201204

REACTIONS (3)
  - Drug dose omission [Unknown]
  - Product quality issue [Unknown]
  - No adverse event [Unknown]
